FAERS Safety Report 8265280-3 (Version None)
Quarter: 2012Q2

REPORT INFORMATION
  Report Type: 
  Country: None (occurrence: None)
  Receive Date: 20120406
  Receipt Date: 20120322
  Transmission Date: 20120825
  Serious: Yes (Hospitalization, Other)
  Sender: FDA-Public Use
  Company Number: JP-ROCHE-781723

PATIENT
  Age: 38 Year
  Sex: Female

DRUGS (42)
  1. MYCOPHENOLATE MOFETIL (CELLCEPT) [Suspect]
     Indication: PROPHYLAXIS AGAINST TRANSPLANT REJECTION
     Route: 048
     Dates: start: 20061217, end: 20061218
  2. MYCOPHENOLATE MOFETIL (CELLCEPT) [Suspect]
     Route: 048
     Dates: start: 20070308, end: 20070308
  3. MYCOPHENOLATE MOFETIL (CELLCEPT) [Suspect]
     Route: 048
     Dates: start: 20081027, end: 20081029
  4. DEPAKENE [Concomitant]
     Route: 048
  5. HUMAN NORMAL IMMUNOGLOBULIN [Concomitant]
     Indication: HEART TRANSPLANT REJECTION
     Route: 042
     Dates: start: 20061228, end: 20070101
  6. COTRIM [Concomitant]
     Indication: PROPHYLAXIS
     Dates: start: 20070108, end: 20070208
  7. VALGANCICLOVIR HCL [Concomitant]
  8. MYCOPHENOLATE MOFETIL (CELLCEPT) [Suspect]
     Route: 048
     Dates: start: 20070216, end: 20070216
  9. MYCOPHENOLATE MOFETIL (CELLCEPT) [Suspect]
     Dates: start: 20100114, end: 20100126
  10. LASIX [Concomitant]
     Indication: PROPHYLAXIS
     Route: 048
     Dates: start: 20061221, end: 20070411
  11. ASPIRIN [Concomitant]
     Indication: PROPHYLAXIS
     Route: 048
     Dates: start: 20061223, end: 20100208
  12. DEPAKENE [Concomitant]
     Indication: PROPHYLAXIS
     Route: 048
     Dates: start: 20061228, end: 20080901
  13. MYCOPHENOLATE MOFETIL (CELLCEPT) [Suspect]
     Route: 048
     Dates: start: 20070322, end: 20070322
  14. AMOBAN [Concomitant]
     Indication: PROPHYLAXIS
     Route: 048
     Dates: start: 20061228, end: 20070601
  15. NORVASC [Concomitant]
     Indication: PROPHYLAXIS
     Route: 048
  16. PRAVASTATIN SODIUM [Concomitant]
     Indication: PROPHYLAXIS
     Dates: start: 20070105
  17. MUCOSTA [Concomitant]
     Indication: PROPHYLAXIS
     Dates: start: 20070316
  18. MYCOPHENOLATE MOFETIL (CELLCEPT) [Suspect]
     Route: 048
  19. MYCOPHENOLATE MOFETIL (CELLCEPT) [Suspect]
     Dates: start: 20090122, end: 20090814
  20. LANSOPRAZOLE [Concomitant]
     Indication: PROPHYLAXIS
     Route: 048
     Dates: start: 20061228, end: 20070323
  21. MYCOPHENOLATE MOFETIL (CELLCEPT) [Suspect]
     Route: 048
     Dates: start: 20070218, end: 20070307
  22. MYCOPHENOLATE MOFETIL (CELLCEPT) [Suspect]
     Route: 048
     Dates: start: 20070309, end: 20070321
  23. PREDNISOLONE [Suspect]
     Indication: PROPHYLAXIS AGAINST TRANSPLANT REJECTION
     Dosage: 2.5-60 MG
     Route: 048
     Dates: start: 20061225, end: 20070903
  24. SULFAMETHOXAZOLE AND TRIMETHOPRIM [Concomitant]
     Route: 048
     Dates: start: 20070108, end: 20070208
  25. ZONISAMIDE [Concomitant]
     Indication: PROPHYLAXIS
     Route: 048
  26. MYCOPHENOLATE MOFETIL (CELLCEPT) [Suspect]
     Route: 048
     Dates: start: 20061219, end: 20070214
  27. MYCOPHENOLATE MOFETIL (CELLCEPT) [Suspect]
     Dates: start: 20090815, end: 20091207
  28. SOLU-MEDROL [Concomitant]
     Route: 042
     Dates: start: 20061218, end: 20061224
  29. VANCOMYCIN [Concomitant]
     Route: 042
     Dates: start: 20061217, end: 20061223
  30. METHYLPREDNISOLONE SODIUM SUCCINATE [Concomitant]
  31. MYCOPHENOLATE MOFETIL (CELLCEPT) [Suspect]
     Route: 048
     Dates: start: 20070217, end: 20070217
  32. TACROLIMUS [Concomitant]
  33. EMPECID [Concomitant]
     Indication: PROPHYLAXIS
     Route: 050
  34. FERROUS CITRATE [Concomitant]
     Indication: PROPHYLAXIS
     Route: 048
     Dates: start: 20070316, end: 20100113
  35. VALGANCICLOVIR [Concomitant]
     Indication: PROPHYLAXIS
     Dates: start: 20061227, end: 20070316
  36. MYCOPHENOLATE MOFETIL (CELLCEPT) [Suspect]
     Route: 048
     Dates: start: 20070215, end: 20070215
  37. MYCOPHENOLATE MOFETIL (CELLCEPT) [Suspect]
     Route: 048
     Dates: start: 20070403, end: 20081009
  38. MYCOPHENOLATE MOFETIL (CELLCEPT) [Suspect]
  39. TACROLIMUS [Suspect]
     Indication: PROPHYLAXIS AGAINST TRANSPLANT REJECTION
     Dosage: 1.2 - 5.4 MG
     Route: 048
  40. PENTAMIDINE ISETHIONATE [Concomitant]
     Indication: PROPHYLAXIS
  41. FERROUS CITRATE [Concomitant]
     Dates: start: 20100114
  42. AMLODIPINE [Concomitant]
     Indication: PROPHYLAXIS

REACTIONS (8)
  - PHARYNGITIS [None]
  - HAEMOGLOBIN DECREASED [None]
  - IMPLANT SITE INDURATION [None]
  - GRANULOCYTOPENIA [None]
  - EPILEPSY [None]
  - WHITE BLOOD CELL COUNT DECREASED [None]
  - STAPHYLOCOCCAL INFECTION [None]
  - UTERINE LEIOMYOMA [None]
